FAERS Safety Report 14571047 (Version 1)
Quarter: 2018Q1

REPORT INFORMATION
  Report Type: Spontaneous
  Country: US (occurrence: US)
  Receive Date: 20180223
  Receipt Date: 20180223
  Transmission Date: 20180509
  Serious: Yes (Hospitalization)
  Sender: FDA-Public Use
  Company Number: None

PATIENT
  Age: 77 Year
  Sex: Female

DRUGS (11)
  1. STELARA [Suspect]
     Active Substance: USTEKINUMAB
     Indication: PSORIATIC ARTHROPATHY
     Dosage: 1 SYRINGE EVERY 12 WEEKS SUBCUTANEOUS
     Route: 058
     Dates: start: 20161214
  2. LOPID [Concomitant]
     Active Substance: GEMFIBROZIL
     Dates: start: 20171212
  3. DIOVAN [Concomitant]
     Active Substance: VALSARTAN
     Dates: start: 20161212
  4. GLIPIZIDE. [Concomitant]
     Active Substance: GLIPIZIDE
     Dates: start: 20170720
  5. ULORIC [Concomitant]
     Active Substance: FEBUXOSTAT
     Dates: start: 20161212
  6. PROTONIX [Concomitant]
     Active Substance: PANTOPRAZOLE SODIUM
     Dates: start: 20161212
  7. LYRICA [Concomitant]
     Active Substance: PREGABALIN
     Dates: start: 20161212
  8. ROPINOLOL [Concomitant]
     Dates: start: 20161212
  9. PROPANOLOL [Concomitant]
     Active Substance: PROPRANOLOL HYDROCHLORIDE
     Dates: start: 20161212
  10. ASPIRIN. [Concomitant]
     Active Substance: ASPIRIN
     Dates: start: 20161216
  11. METFORMIN [Concomitant]
     Active Substance: METFORMIN HYDROCHLORIDE
     Dates: start: 20161212

REACTIONS (2)
  - Shoulder arthroplasty [None]
  - Localised infection [None]

NARRATIVE: CASE EVENT DATE: 20171128
